FAERS Safety Report 7584451-2 (Version None)
Quarter: 2011Q2

REPORT INFORMATION
  Report Type: 
  Country: None (occurrence: None)
  Receive Date: 20110531
  Receipt Date: 20110204
  Transmission Date: 20111010
  Serious: Yes (Hospitalization)
  Sender: FDA-Public Use
  Company Number: WAES 1102USA00722

PATIENT
  Age: 47 Year
  Sex: Male

DRUGS (2)
  1. JANUMET [Suspect]
     Dosage: /PO
     Route: 048
  2. ACTOS [Concomitant]

REACTIONS (1)
  - PANCREATITIS [None]
